FAERS Safety Report 9373686 (Version 4)
Quarter: 2013Q3

REPORT INFORMATION
  Report Type: Spontaneous
  Country: CA (occurrence: CA)
  Receive Date: 20130627
  Receipt Date: 20130814
  Transmission Date: 20140515
  Serious: Yes (Death, Hospitalization, Other)
  Sender: FDA-Public Use
  Company Number: CA-BAXTER-2013BAX021967

PATIENT
  Age: 64 Year
  Sex: Male

DRUGS (6)
  1. DIANEAL PD101 SOLUTION WITH 1.5% DEXTROSE [Suspect]
     Indication: RENAL FAILURE
     Route: 033
     Dates: end: 20130728
  2. DIANEAL PD101 SOLUTION WITH 1.5% DEXTROSE [Suspect]
     Indication: PERITONEAL DIALYSIS
  3. DIANEAL PD101 SOLUTION WITH 2.5% DEXTROSE [Suspect]
     Indication: RENAL FAILURE
     Route: 033
     Dates: end: 20130728
  4. DIANEAL PD101 SOLUTION WITH 2.5% DEXTROSE [Suspect]
     Indication: PERITONEAL DIALYSIS
  5. EXTRANEAL [Suspect]
     Indication: RENAL FAILURE
     Route: 033
     Dates: end: 20130728
  6. EXTRANEAL [Suspect]
     Indication: PERITONEAL DIALYSIS

REACTIONS (6)
  - Haemorrhoid infection [Fatal]
  - Infection [Fatal]
  - Gastrointestinal infection [Fatal]
  - Sepsis [Fatal]
  - General physical health deterioration [Fatal]
  - Myocardial infarction [Fatal]
